FAERS Safety Report 25066106 (Version 3)
Quarter: 2025Q2

REPORT INFORMATION
  Report Type: Report from Study
  Country: ES (occurrence: ES)
  Receive Date: 20250312
  Receipt Date: 20250602
  Transmission Date: 20250717
  Serious: Yes (Other)
  Sender: TAKEDA
  Company Number: ES-TAKEDA-2024TUS024120

PATIENT
  Age: 9 Year
  Sex: Male

DRUGS (19)
  1. TEDUGLUTIDE [Suspect]
     Active Substance: TEDUGLUTIDE
     Indication: Short-bowel syndrome
     Dosage: 0.8 MILLIGRAM, QD
     Dates: start: 20170820, end: 20220214
  2. TEDUGLUTIDE [Suspect]
     Active Substance: TEDUGLUTIDE
     Dosage: 0.9 MILLIGRAM, QD
     Dates: start: 20220214, end: 20230426
  3. TEDUGLUTIDE [Suspect]
     Active Substance: TEDUGLUTIDE
     Dosage: 1 MILLIGRAM, QD
     Dates: start: 20230426, end: 20250127
  4. TEDUGLUTIDE [Suspect]
     Active Substance: TEDUGLUTIDE
     Dosage: 1.1 MILLIGRAM, QD
     Dates: start: 20250127
  5. VITAMIN A [Concomitant]
     Active Substance: VITAMIN A
     Indication: Vitamin A deficiency
     Dosage: 100000 INTERNATIONAL UNIT, MONTHLY
     Dates: start: 20220603, end: 20240122
  6. VITAMIN A [Concomitant]
     Active Substance: VITAMIN A
     Dosage: 100000 INTERNATIONAL UNIT, MONTHLY
     Dates: start: 20240122
  7. VITAMIN E [Concomitant]
     Active Substance: .ALPHA.-TOCOPHEROL
     Indication: Vitamin E deficiency
     Dosage: 200 MILLIGRAM, QD
     Dates: start: 20230821, end: 20240122
  8. VITAMIN E [Concomitant]
     Active Substance: .ALPHA.-TOCOPHEROL
     Dosage: 200 MILLIGRAM, BID
     Dates: start: 20240122
  9. KETOTIFEN [Concomitant]
     Active Substance: KETOTIFEN
     Indication: Conjunctivitis allergic
     Dosage: 2 GTT DROPS, BID
     Dates: start: 20240213
  10. DESLORATADINE [Concomitant]
     Active Substance: DESLORATADINE
     Indication: Conjunctivitis allergic
     Dosage: 5 MILLILITER, QD
     Dates: start: 20240213
  11. MOMETASONE [Concomitant]
     Active Substance: MOMETASONE
     Indication: Conjunctivitis allergic
     Dosage: 100 MICROGRAM, QD
     Dates: start: 20140213
  12. CHOLECALCIFEROL [Concomitant]
     Active Substance: CHOLECALCIFEROL
     Indication: Vitamin D deficiency
     Dosage: 18000 INTERNATIONAL UNIT, QD
     Dates: start: 20231213, end: 20240318
  13. CHOLECALCIFEROL [Concomitant]
     Active Substance: CHOLECALCIFEROL
     Dosage: 23000 INTERNATIONAL UNIT, QD
     Dates: start: 20240318, end: 20240729
  14. VITAMIN D [Concomitant]
     Active Substance: VITAMIN D NOS
     Indication: Vitamin D deficiency
     Dosage: 50000 INTERNATIONAL UNIT, SINGLE
     Dates: start: 20240729, end: 20240729
  15. PIMECROLIMUS [Concomitant]
     Active Substance: PIMECROLIMUS
     Indication: Dermatitis
     Dosage: UNK UNK, QD
     Route: 061
     Dates: start: 20180816
  16. RIFAXIMIN [Concomitant]
     Active Substance: RIFAXIMIN
     Indication: Overgrowth bacterial
     Dosage: 100 MILLIGRAM, BID
     Dates: start: 20220711, end: 20240318
  17. MAGNESIUM [Concomitant]
     Active Substance: MAGNESIUM
     Indication: Hypomagnesaemia
     Dosage: 100 MILLIGRAM, QD
     Dates: start: 20230519
  18. CYANOCOBALAMIN [Concomitant]
     Active Substance: CYANOCOBALAMIN
     Indication: Vitamin B12 deficiency
     Dosage: 1 MILLIGRAM, 2/WEEK
     Dates: start: 20230821
  19. CALCIUM CARBONATE [Concomitant]
     Active Substance: CALCIUM CARBONATE
     Indication: Osteopenia
     Dosage: 1800 MILLIGRAM, QD
     Dates: start: 20230426

REACTIONS (5)
  - Hyperbilirubinaemia [Not Recovered/Not Resolved]
  - Iron deficiency anaemia [Recovered/Resolved]
  - Seasonal allergy [Not Recovered/Not Resolved]
  - Arthralgia [Recovered/Resolved]
  - Iron deficiency [Not Recovered/Not Resolved]

NARRATIVE: CASE EVENT DATE: 20231204
